FAERS Safety Report 19513793 (Version 1)
Quarter: 2021Q3

REPORT INFORMATION
  Report Type: Spontaneous
  Country: IT (occurrence: IT)
  Receive Date: 20210709
  Receipt Date: 20210709
  Transmission Date: 20211014
  Serious: Yes (Other)
  Sender: FDA-Public Use
  Company Number: IT-MYLANLABS-2021M1039575

PATIENT
  Sex: Female

DRUGS (2)
  1. VALGANCICLOVIR. [Suspect]
     Active Substance: VALGANCICLOVIR
     Indication: RETINITIS
     Dosage: 16 MILLIGRAM/KILOGRAM
     Route: 065
     Dates: start: 20200618, end: 20200622
  2. CYTOVENE IV [Suspect]
     Active Substance: GANCICLOVIR SODIUM
     Indication: RETINITIS
     Dosage: 6 MILLIGRAM/KILOGRAM, QD
     Route: 065
     Dates: start: 20200612, end: 20200618

REACTIONS (3)
  - Intentional product use issue [Unknown]
  - Off label use [Unknown]
  - Neutropenia [Recovered/Resolved]

NARRATIVE: CASE EVENT DATE: 20200618
